FAERS Safety Report 4555356-6 (Version None)
Quarter: 2005Q1

REPORT INFORMATION
  Report Type: 
  Country: None (occurrence: None)
  Receive Date: 20050118
  Receipt Date: 20050118
  Transmission Date: 20050727
  Serious: Yes (Life-Threatening, Hospitalization)
  Sender: FDA-Public Use
  Company Number: None

PATIENT
  Age: 67 Year
  Sex: Male
  Weight: 85.4 kg

DRUGS (4)
  1. CARBOPLATIN [Suspect]
     Indication: OESOPHAGEAL CARCINOMA
     Dosage: AUC=4   380 MG INTRAVENOUS
     Route: 042
     Dates: start: 20041227, end: 20041227
  2. TAXOL [Suspect]
     Indication: OESOPHAGEAL CARCINOMA
     Dosage: TAXOL 3 HR  390 MG INTRAVENOUS
     Route: 042
     Dates: start: 20041227, end: 20041227
  3. FLUOROURACIL [Concomitant]
  4. RADIATION [Concomitant]

REACTIONS (12)
  - ABDOMINAL PAIN [None]
  - ANOREXIA [None]
  - DEHYDRATION [None]
  - DIARRHOEA [None]
  - DRUG INEFFECTIVE [None]
  - DRUG TOXICITY [None]
  - DRY MOUTH [None]
  - ELECTROLYTE IMBALANCE [None]
  - FAECES DISCOLOURED [None]
  - NAUSEA [None]
  - ORTHOSTATIC HYPOTENSION [None]
  - STOMATITIS [None]
